FAERS Safety Report 23205220 (Version 1)
Quarter: 2023Q4

REPORT INFORMATION
  Report Type: Spontaneous
  Country: US (occurrence: US)
  Receive Date: 20231120
  Receipt Date: 20231120
  Transmission Date: 20240110
  Serious: No
  Sender: FDA-Public Use
  Company Number: US-SA-SAC20231114000725

PATIENT
  Age: 7 Year
  Sex: Male
  Weight: 24.49 kg

DRUGS (5)
  1. DUPIXENT [Suspect]
     Active Substance: DUPILUMAB
     Indication: Dermatitis atopic
     Dosage: 300 MG, Q4W
     Route: 058
     Dates: start: 20220524
  2. XIPAMIDE [Concomitant]
     Active Substance: XIPAMIDE
  3. TACROLIMUS [Concomitant]
     Active Substance: TACROLIMUS
  4. MELATONIN [Concomitant]
     Active Substance: MELATONIN
  5. ZYRTEC [Concomitant]
     Active Substance: CETIRIZINE HYDROCHLORIDE

REACTIONS (2)
  - Pruritus [Unknown]
  - Drug effect less than expected [Unknown]
